FAERS Safety Report 5565803-9 (Version None)
Quarter: 2007Q4

REPORT INFORMATION
  Report Type: 
  Country: None (occurrence: None)
  Receive Date: 20071218
  Receipt Date: 20071205
  Transmission Date: 20080405
  Serious: Yes (Hospitalization)
  Sender: FDA-Public Use
  Company Number: ES-GENENTECH-252751

PATIENT
  Sex: Female

DRUGS (5)
  1. BEVACIZUMAB [Suspect]
     Indication: BREAST CANCER
     Dosage: 885 MG, Q3W
     Route: 042
     Dates: start: 20071004
  2. HERCEPTIN [Suspect]
     Indication: BREAST CANCER
     Dosage: 354 MG, Q3W
     Route: 042
     Dates: start: 20071004
  3. DOCETAXEL [Suspect]
     Indication: BREAST CANCER
     Dosage: 162 MG, Q3W
     Route: 042
     Dates: start: 20071005
  4. PREDNISONE [Concomitant]
     Indication: DRUG USE FOR UNKNOWN INDICATION
  5. METHOTREXATE [Concomitant]
     Indication: DRUG USE FOR UNKNOWN INDICATION

REACTIONS (1)
  - PYREXIA [None]
